FAERS Safety Report 25243913 (Version 1)
Quarter: 2025Q2

REPORT INFORMATION
  Report Type: Spontaneous
  Country: US (occurrence: US)
  Receive Date: 20250428
  Receipt Date: 20250428
  Transmission Date: 20250716
  Serious: Yes (Other)
  Sender: COOPERSURGICAL
  Company Number: US-COOPERSURGICAL, INC.-2025CPS003170

PATIENT
  Age: 33 Year
  Sex: Female
  Weight: 77.098 kg

DRUGS (1)
  1. PARAGARD T 380A [Suspect]
     Active Substance: COPPER
     Indication: Contraception
     Route: 015
     Dates: start: 20101001

REACTIONS (18)
  - Reproductive complication associated with device [Unknown]
  - Ovarian cyst [Unknown]
  - Device breakage [Not Recovered/Not Resolved]
  - Foreign body in reproductive tract [Not Recovered/Not Resolved]
  - Complication of device removal [Not Recovered/Not Resolved]
  - Embedded device [Not Recovered/Not Resolved]
  - Uterine perforation [Not Recovered/Not Resolved]
  - Procedural pain [Recovered/Resolved]
  - Scar [Not Recovered/Not Resolved]
  - Depression [Not Recovered/Not Resolved]
  - Emotional disorder [Unknown]
  - Muscle spasms [Recovered/Resolved]
  - Device dislocation [Not Recovered/Not Resolved]
  - Pain [Not Recovered/Not Resolved]
  - Dyspareunia [Not Recovered/Not Resolved]
  - Vaginal infection [Not Recovered/Not Resolved]
  - Intentional device use issue [Not Recovered/Not Resolved]
  - Off label use [Unknown]

NARRATIVE: CASE EVENT DATE: 20201002
